FAERS Safety Report 10145889 (Version 1)
Quarter: 2014Q2

REPORT INFORMATION
  Report Type: Spontaneous
  Country: US (occurrence: US)
  Receive Date: 20140501
  Receipt Date: 20140501
  Transmission Date: 20141212
  Serious: No
  Sender: FDA-Public Use
  Company Number: US-ABBVIE-14P-163-1224262-00

PATIENT
  Sex: Male

DRUGS (1)
  1. CREON [Suspect]
     Indication: DYSPEPSIA

REACTIONS (1)
  - Diarrhoea [Not Recovered/Not Resolved]
